FAERS Safety Report 9403502 (Version 1)
Quarter: 2013Q3

REPORT INFORMATION
  Report Type: Spontaneous
  Country: DE (occurrence: DE)
  Receive Date: 20130716
  Receipt Date: 20130716
  Transmission Date: 20140515
  Serious: Yes (Hospitalization)
  Sender: FDA-Public Use
  Company Number: DE-VERTEX PHARMACEUTICALS INC-2013-007990

PATIENT
  Age: 57 Year
  Sex: Male
  Weight: 100 kg

DRUGS (5)
  1. INCIVO [Suspect]
     Indication: CHRONIC HEPATITIS C
     Dosage: 750 MG, TID, TABLET
     Route: 048
     Dates: start: 20130117, end: 20130327
  2. INTERFERON [Suspect]
     Indication: CHRONIC HEPATITIS C
     Dosage: 90 ?G, QW
     Route: 058
     Dates: start: 20130117
  3. RIBAVIRIN [Suspect]
     Indication: CHRONIC HEPATITIS C
     Dosage: 200 NG, BID
     Route: 058
     Dates: start: 20130117
  4. DOCITON [Concomitant]
     Indication: VARICES OESOPHAGEAL
     Dosage: 10 MG, TID
     Route: 048
     Dates: start: 201212
  5. ZYLORIC [Concomitant]
     Indication: BLOOD UREA INCREASED
     Dosage: 100 MG, QD
     Route: 048
     Dates: start: 201302

REACTIONS (2)
  - Rash maculo-papular [Recovered/Resolved]
  - Thrombocytopenia [Unknown]
